FAERS Safety Report 6020472-9 (Version None)
Quarter: 2008Q4

REPORT INFORMATION
  Report Type: 
  Country: None (occurrence: None)
  Receive Date: 20081222
  Receipt Date: 20081204
  Transmission Date: 20090506
  Serious: Yes (Hospitalization)
  Sender: FDA-Public Use
  Company Number: 1000003172

PATIENT
  Age: 62 Year
  Sex: Male

DRUGS (5)
  1. ACAMPROSATE (ACAMPROSATE CALCIUM) [Suspect]
     Dosage: ORAL
     Route: 048
     Dates: end: 20081108
  2. LOVENOX [Concomitant]
  3. TOPALGIC [Suspect]
     Dosage: 200 MG (20 0 MG,1 IN 1 D), ORAL
     Route: 048
     Dates: start: 20081030, end: 20081110
  4. INIPOMP [Suspect]
     Dosage: 20 MG (20 MG, 1 IN 1 D), ORAL
     Route: 048
     Dates: start: 20081027
  5. SPECIAFOLDINE [Suspect]
     Dosage: 10 MG (10 MG, 1 IN 1 D), ORAL
     Route: 048
     Dates: start: 20081027, end: 20081108

REACTIONS (7)
  - ALCOHOL POISONING [None]
  - ALCOHOLIC SEIZURE [None]
  - BACK PAIN [None]
  - FALL [None]
  - PURPURA [None]
  - TOXIC SKIN ERUPTION [None]
  - VASCULITIS [None]
